FAERS Safety Report 12410315 (Version 1)
Quarter: 2016Q2

REPORT INFORMATION
  Report Type: Spontaneous
  Country: GB (occurrence: GB)
  Receive Date: 20160527
  Receipt Date: 20160527
  Transmission Date: 20160815
  Serious: Yes (Other)
  Sender: FDA-Public Use
  Company Number: GB-ACCORD-040760

PATIENT
  Age: 67 Year
  Sex: Male
  Weight: 70 kg

DRUGS (8)
  1. AMITRIPTYLINE [Concomitant]
     Active Substance: AMITRIPTYLINE
  2. AMLODIPINE [Suspect]
     Active Substance: AMLODIPINE BESYLATE
     Indication: HYPERTENSION
     Route: 048
     Dates: start: 2015
  3. CLONAZEPAM. [Concomitant]
     Active Substance: CLONAZEPAM
  4. CO-DYDRAMOL ACTAVIS [Concomitant]
  5. SIMVASTATIN. [Concomitant]
     Active Substance: SIMVASTATIN
  6. OMEPRAZOLE. [Concomitant]
     Active Substance: OMEPRAZOLE
  7. ALLOPURINOL. [Concomitant]
     Active Substance: ALLOPURINOL
  8. CALCICHEW [Concomitant]
     Active Substance: CALCIUM CARBONATE

REACTIONS (3)
  - Condition aggravated [Recovering/Resolving]
  - Swelling [Recovering/Resolving]
  - Pain [Recovering/Resolving]
